FAERS Safety Report 18564322 (Version 2)
Quarter: 2020Q4

REPORT INFORMATION
  Report Type: Spontaneous
  Country: ZA (occurrence: ZA)
  Receive Date: 20201201
  Receipt Date: 20201203
  Transmission Date: 20210114
  Serious: Yes (Death, Other)
  Sender: FDA-Public Use
  Company Number: ZA-CELGENEUS-ZAF-20201107104

PATIENT
  Sex: Female

DRUGS (1)
  1. REVLIMID [Suspect]
     Active Substance: LENALIDOMIDE
     Indication: PLASMA CELL MYELOMA
     Dosage: 25 MILLIGRAM
     Route: 048
     Dates: start: 20200901, end: 20201027

REACTIONS (5)
  - Seizure [Unknown]
  - Performance status decreased [Unknown]
  - Plasma cell myeloma [Fatal]
  - Renal failure [Unknown]
  - Refractory cytopenia with unilineage dysplasia [Unknown]

NARRATIVE: CASE EVENT DATE: 202010
